FAERS Safety Report 25664590 (Version 1)
Quarter: 2025Q3

REPORT INFORMATION
  Report Type: Spontaneous
  Country: US (occurrence: None)
  Receive Date: 20250808
  Receipt Date: 20250808
  Transmission Date: 20251021
  Serious: No
  Sender: FDA-CTU
  Company Number: None

PATIENT
  Age: 70 Year
  Sex: Male
  Weight: 72.57 kg

DRUGS (1)
  1. ZORYVE [Suspect]
     Active Substance: ROFLUMILAST
     Indication: Dermatitis atopic
     Dosage: APPLLY TO AFFECTED AREA(S) ON SCALP ONCE DAILY AS DIRECTED?
     Dates: start: 202503

REACTIONS (2)
  - Prostatic disorder [None]
  - Bladder disorder [None]
